FAERS Safety Report 5884760-9 (Version None)
Quarter: 2008Q3

REPORT INFORMATION
  Report Type: 
  Country: None (occurrence: None)
  Receive Date: 20080916
  Receipt Date: 20080908
  Transmission Date: 20090109
  Serious: Yes (Hospitalization, Other)
  Sender: FDA-Public Use
  Company Number: ZA-AVENTIS-200818548GDDC

PATIENT
  Age: 45 Year
  Sex: Female

DRUGS (8)
  1. TAXOTERE [Suspect]
     Indication: BREAST CANCER
     Route: 042
     Dates: start: 20080904, end: 20080904
  2. CELESTONE                          /00008501/ [Concomitant]
     Indication: PREMEDICATION
     Route: 048
     Dates: start: 20080903, end: 20080903
  3. CELESTONE                          /00008501/ [Concomitant]
     Route: 048
     Dates: start: 20080905, end: 20080906
  4. CHLOR-TRIMETON [Concomitant]
     Indication: PREMEDICATION
     Route: 048
     Dates: start: 20080811, end: 20080812
  5. KYTRIL                             /01178101/ [Concomitant]
     Indication: PREMEDICATION
     Route: 048
     Dates: start: 20080905, end: 20080907
  6. KYTRIL                             /01178101/ [Concomitant]
     Route: 042
     Dates: start: 20080904, end: 20080904
  7. ZANTAC [Concomitant]
     Indication: PREMEDICATION
     Route: 042
     Dates: start: 20080904, end: 20080904
  8. HERCEPTIN [Concomitant]
     Indication: BREAST CANCER
     Route: 041
     Dates: start: 20080904, end: 20080904

REACTIONS (10)
  - ANGLE CLOSURE GLAUCOMA [None]
  - BLINDNESS UNILATERAL [None]
  - CELLULITIS ORBITAL [None]
  - ENDOPHTHALMITIS [None]
  - EXOPHTHALMOS [None]
  - EYE SWELLING [None]
  - NEUTROPENIA [None]
  - PHOTOPHOBIA [None]
  - PUPILLARY REFLEX IMPAIRED [None]
  - WHITE BLOOD CELL COUNT DECREASED [None]
